FAERS Safety Report 5041980-3 (Version None)
Quarter: 2006Q2

REPORT INFORMATION
  Report Type: 
  Country: None (occurrence: None)
  Receive Date: 20060630
  Receipt Date: 20060621
  Transmission Date: 20061013
  Serious: Yes (Other)
  Sender: FDA-Public Use
  Company Number: 2006BH011367

PATIENT
  Age: 55 Year
  Sex: Female

DRUGS (7)
  1. FLUCONAZOLE [Suspect]
     Indication: PNEUMONIA FUNGAL
     Dosage: 200 MG; UNK; IV
     Route: 042
  2. IDARUBICIN HCL [Concomitant]
  3. CYTARABINE [Concomitant]
  4. ETOPOSIDE [Concomitant]
  5. DAUNORUBICIN HCL [Concomitant]
  6. MERCAPTOPURINE [Concomitant]
  7. AMINOPHYLLINE [Concomitant]

REACTIONS (6)
  - BACTERIAL INFECTION [None]
  - FUNGAL INFECTION [None]
  - PNEUMONIA [None]
  - SUPERINFECTION [None]
  - SYNCOPE [None]
  - TORSADE DE POINTES [None]
